FAERS Safety Report 19923501 (Version 3)
Quarter: 2021Q4

REPORT INFORMATION
  Report Type: Report from Study
  Country: US (occurrence: US)
  Receive Date: 20211005
  Receipt Date: 20211019
  Transmission Date: 20220304
  Serious: No
  Sender: FDA-Public Use
  Company Number: NVSC2021US227856

PATIENT
  Sex: Female

DRUGS (1)
  1. ENTRESTO [Suspect]
     Active Substance: SACUBITRIL\VALSARTAN
     Indication: Cardiomyopathy
     Dosage: UNK UNK, UNKNOWN
     Route: 065

REACTIONS (3)
  - Pain in extremity [Unknown]
  - Cough [Unknown]
  - Product use in unapproved indication [Unknown]
